FAERS Safety Report 6591170-8 (Version None)
Quarter: 2010Q1

REPORT INFORMATION
  Report Type: 
  Country: None (occurrence: None)
  Receive Date: 20100210
  Receipt Date: 20100203
  Transmission Date: 20100710
  Serious: Yes (Hospitalization)
  Sender: FDA-Public Use
  Company Number: DSA_42559_2010

PATIENT
  Age: 61 Year
  Sex: Female

DRUGS (4)
  1. XENAZINE [Suspect]
     Indication: DYSKINESIA
     Dosage: (12.5 MG QD ORAL)
     Route: 048
     Dates: start: 20090909, end: 20091201
  2. XENAZINE [Suspect]
     Indication: EXTRAPYRAMIDAL DISORDER
     Dosage: (12.5 MG QD ORAL)
     Route: 048
     Dates: start: 20090909, end: 20091201
  3. CLONAZEPAM [Concomitant]
  4. RITALIN [Concomitant]

REACTIONS (3)
  - BLOOD PRESSURE INCREASED [None]
  - CHEST DISCOMFORT [None]
  - ELECTROCARDIOGRAM ABNORMAL [None]
